FAERS Safety Report 25767561 (Version 1)
Quarter: 2025Q3

REPORT INFORMATION
  Report Type: Spontaneous
  Country: US (occurrence: None)
  Receive Date: 20250904
  Receipt Date: 20250904
  Transmission Date: 20251020
  Serious: Yes (Other)
  Sender: FDA-CTU
  Company Number: None

PATIENT
  Age: 16 Year
  Sex: Female
  Weight: 51.75 kg

DRUGS (7)
  1. SEROQUEL [Suspect]
     Active Substance: QUETIAPINE FUMARATE
     Indication: Major depression
     Dosage: OTHER QUANTITY : 1 TABLET(S);?FREQUENCY : AT BEDTIME;?
     Route: 048
  2. SEROQUEL [Suspect]
     Active Substance: QUETIAPINE FUMARATE
     Indication: Borderline personality disorder
  3. SEROQUEL [Suspect]
     Active Substance: QUETIAPINE FUMARATE
     Indication: Anxiety
  4. SEROQUEL [Suspect]
     Active Substance: QUETIAPINE FUMARATE
     Indication: Post-traumatic stress disorder
  5. RIZATRIPTAN [Concomitant]
     Active Substance: RIZATRIPTAN
  6. Migraleaf [Concomitant]
  7. Migraleaf triple action fast acting [Concomitant]

REACTIONS (8)
  - Loss of dreaming [None]
  - Nightmare [None]
  - Abnormal dreams [None]
  - Nightmare [None]
  - Somnambulism [None]
  - Sleep disorder [None]
  - Somnambulism [None]
  - Eating disorder symptom [None]

NARRATIVE: CASE EVENT DATE: 20250615
